FAERS Safety Report 8713410 (Version 3)
Quarter: 2012Q4

REPORT INFORMATION
  Report Type: 
  Country: JP (occurrence: JP)
  Receive Date: 20120808
  Receipt Date: 20121121
  Transmission Date: 20130627
  Serious: Yes (Hospitalization)
  Sender: FDA-Public Use
  Company Number: JP-GLAXOSMITHKLINE-B0669827A

PATIENT
  Age: 70 Year
  Sex: Female

DRUGS (4)
  1. LAMICTAL [Suspect]
     Indication: EPILEPSY
     Dosage: 25MG Twice per day
     Route: 048
     Dates: start: 20100510, end: 20100625
  2. DEPAKENE [Suspect]
     Indication: EPILEPSY
     Dosage: 500MG Twice per day
     Route: 048
     Dates: start: 20100507
  3. TEGRETOL [Concomitant]
     Indication: EPILEPSY
     Dosage: 150MG Twice per day
     Route: 048
     Dates: start: 20100707, end: 20100813
  4. MYSTAN [Concomitant]
     Indication: EPILEPSY
     Dosage: 7MG Three times per day
     Route: 048
     Dates: start: 20100715, end: 20100831

REACTIONS (12)
  - Drug reaction with eosinophilia and systemic symptoms [Recovered/Resolved]
  - Rash generalised [Unknown]
  - Pyrexia [Unknown]
  - Generalised erythema [Unknown]
  - Perianal erythema [Unknown]
  - Anal erosion [Unknown]
  - Anal haemorrhage [Unknown]
  - Rash [Unknown]
  - Lymphocyte stimulation test positive [Unknown]
  - White blood cell count increased [Unknown]
  - Human herpes virus 6 serology positive [Unknown]
  - Gamma-glutamyltransferase increased [Unknown]
